FAERS Safety Report 4845176-7 (Version None)
Quarter: 2005Q4

REPORT INFORMATION
  Report Type: 
  Country: None (occurrence: None)
  Receive Date: 20051115
  Receipt Date: 20050816
  Transmission Date: 20060501
  Serious: Yes (Disabling)
  Sender: FDA-Public Use
  Company Number: 414461

PATIENT
  Age: 52 Year
  Sex: Female
  Weight: 89.8 kg

DRUGS (2)
  1. PEGASYS [Suspect]
     Dosage: SUBCUTANEOUS
     Route: 058
     Dates: start: 20050605
  2. COPEGUS [Concomitant]

REACTIONS (1)
  - HAEMATOCRIT DECREASED [None]
